FAERS Safety Report 23386648 (Version 1)
Quarter: 2024Q1

REPORT INFORMATION
  Report Type: Spontaneous
  Country: US (occurrence: US)
  Receive Date: 20240110
  Receipt Date: 20240110
  Transmission Date: 20240410
  Serious: Yes (Life-Threatening, Other)
  Sender: FDA-Public Use
  Company Number: US-MLMSERVICE-20231221-4738477-1

PATIENT
  Age: 72 Year
  Sex: Female

DRUGS (1)
  1. FLECAINIDE [Suspect]
     Active Substance: FLECAINIDE
     Indication: Ventricular extrasystoles
     Dosage: 100 MILLIGRAM, Q12H
     Route: 065

REACTIONS (6)
  - Electrocardiogram QRS complex prolonged [Recovering/Resolving]
  - Toxicity to various agents [Unknown]
  - Hypotension [Recovering/Resolving]
  - Rhythm idioventricular [Recovering/Resolving]
  - Electrocardiogram abnormal [Recovering/Resolving]
  - Device pacing issue [Recovering/Resolving]
